FAERS Safety Report 23483050 (Version 1)
Quarter: 2024Q1

REPORT INFORMATION
  Report Type: Spontaneous
  Country: US (occurrence: US)
  Receive Date: 20240205
  Receipt Date: 20240205
  Transmission Date: 20240410
  Serious: No
  Sender: FDA-Public Use
  Company Number: US-PFIZER INC-PV202400015715

PATIENT
  Age: 68 Year
  Sex: Female

DRUGS (1)
  1. IBRANCE [Suspect]
     Active Substance: PALBOCICLIB
     Indication: Breast cancer
     Dosage: 75 MG, CYCLIC ( TAKE 1 TABLET EVERY DAY FOR 21 DAYS OUT OF 28 DAY CYCLE)
     Route: 048
     Dates: start: 20200522

REACTIONS (1)
  - White blood cell count decreased [Not Recovered/Not Resolved]
